FAERS Safety Report 23505756 (Version 1)
Quarter: 2024Q1

REPORT INFORMATION
  Report Type: Spontaneous
  Country: US (occurrence: None)
  Receive Date: 20240208
  Receipt Date: 20240208
  Transmission Date: 20240409
  Serious: Yes (Hospitalization, Disabling)
  Sender: FDA-Public Use
  Company Number: None

PATIENT
  Age: 31 Year
  Sex: Male
  Weight: 67.5 kg

DRUGS (8)
  1. CLONAZEPAM [Suspect]
     Active Substance: CLONAZEPAM
     Indication: Sleep disorder
     Dosage: FREQUENCY : AS NEEDED;?
     Route: 048
  2. CLONAZEPAM [Suspect]
     Active Substance: CLONAZEPAM
     Indication: Anxiety
  3. LEXAPRO [Concomitant]
     Active Substance: ESCITALOPRAM OXALATE
  4. TRAZODONE [Concomitant]
     Active Substance: TRAZODONE HYDROCHLORIDE
  5. MELATONIN [Concomitant]
     Active Substance: MELATONIN
  6. CLARITIN [Concomitant]
     Active Substance: LORATADINE
  7. VITAMINS [Concomitant]
     Active Substance: VITAMINS
  8. WHEY [Concomitant]
     Active Substance: WHEY

REACTIONS (10)
  - Palpitations [None]
  - Insomnia [None]
  - Psychotic disorder [None]
  - Akathisia [None]
  - Suicidal ideation [None]
  - Violence-related symptom [None]
  - Hyperhidrosis [None]
  - Panic attack [None]
  - Hypersensitivity [None]
  - Drug withdrawal syndrome [None]

NARRATIVE: CASE EVENT DATE: 20230107
